FAERS Safety Report 23064723 (Version 1)
Quarter: 2023Q4

REPORT INFORMATION
  Report Type: Report from Study
  Country: US (occurrence: US)
  Receive Date: 20231013
  Receipt Date: 20231013
  Transmission Date: 20240110
  Serious: Yes (Other)
  Sender: FDA-Public Use
  Company Number: US-JNJFOC-20231014995

PATIENT
  Age: 50 Year
  Sex: Female

DRUGS (1)
  1. SPRAVATO [Suspect]
     Active Substance: ESKETAMINE
     Indication: Depression
     Dosage: 84 MG, 16 DOSES
     Dates: start: 20230420, end: 20230802

REACTIONS (1)
  - Surgery [Recovering/Resolving]

NARRATIVE: CASE EVENT DATE: 20230802
